FAERS Safety Report 14174922 (Version 6)
Quarter: 2019Q3

REPORT INFORMATION
  Report Type: Spontaneous
  Country: US (occurrence: US)
  Receive Date: 20171109
  Receipt Date: 20190709
  Transmission Date: 20191004
  Serious: Yes (Other)
  Sender: FDA-Public Use
  Company Number: US-AMGEN-USASP2017166318

PATIENT
  Age: 69 Year
  Sex: Female

DRUGS (3)
  1. PROLIA [Suspect]
     Active Substance: DENOSUMAB
     Indication: OSTEOPOROSIS POSTMENOPAUSAL
     Dosage: 60 MILLIGRAM, Q6MO
     Route: 065
     Dates: start: 2015
  2. PROGESTERONE. [Concomitant]
     Active Substance: PROGESTERONE
  3. ESTROGEN [Concomitant]
     Active Substance: ESTROGENS

REACTIONS (7)
  - Oral infection [Recovered/Resolved]
  - Tooth infection [Not Recovered/Not Resolved]
  - Low turnover osteopathy [Unknown]
  - Impaired healing [Unknown]
  - Anal fistula infection [Unknown]
  - Tooth extraction [Unknown]
  - Tooth fracture [Unknown]

NARRATIVE: CASE EVENT DATE: 201705
